FAERS Safety Report 13228918 (Version 1)
Quarter: 2017Q1

REPORT INFORMATION
  Report Type: Report from Study
  Country: CO (occurrence: CO)
  Receive Date: 20170213
  Receipt Date: 20170213
  Transmission Date: 20170428
  Serious: Yes (Death, Hospitalization)
  Sender: FDA-Public Use
  Company Number: CO-ROCHE-1393372

PATIENT
  Age: 71 Year
  Sex: Male

DRUGS (1)
  1. MYCOPHENOLATE MOFETIL. [Suspect]
     Active Substance: MYCOPHENOLATE MOFETIL
     Indication: LIVER TRANSPLANT
     Dosage: 45000 MG EVERY 30 DIAS
     Route: 048
     Dates: start: 20090218, end: 20151112

REACTIONS (2)
  - Cellulitis [Unknown]
  - Death [Fatal]

NARRATIVE: CASE EVENT DATE: 20140413
